FAERS Safety Report 6206447-5 (Version None)
Quarter: 2009Q2

REPORT INFORMATION
  Report Type: 
  Country: None (occurrence: None)
  Receive Date: 20090528
  Receipt Date: 20090519
  Transmission Date: 20091009
  Serious: Yes (Other)
  Sender: FDA-Public Use
  Company Number: PHHY2009BR13113

PATIENT
  Age: 21 Year
  Sex: Female

DRUGS (1)
  1. METHERGINE [Suspect]
     Indication: ABORTION
     Dosage: 0.125MG

REACTIONS (2)
  - ABORTION [None]
  - DRUG EXPOSURE DURING PREGNANCY [None]
